FAERS Safety Report 6360113-4 (Version None)
Quarter: 2009Q3

REPORT INFORMATION
  Report Type: 
  Country: None (occurrence: None)
  Receive Date: 20090917
  Receipt Date: 20090910
  Transmission Date: 20100115
  Serious: Yes (Other)
  Sender: FDA-Public Use
  Company Number: PHEH2009US10749

PATIENT
  Sex: Male

DRUGS (2)
  1. EXELON [Suspect]
     Indication: PARKINSON'S DISEASE
     Dosage: UNK
     Route: 062
  2. SINEMET [Suspect]
     Indication: PARKINSON'S DISEASE

REACTIONS (2)
  - DISORIENTATION [None]
  - HALLUCINATION [None]
